FAERS Safety Report 6688058-0 (Version None)
Quarter: 2010Q2

REPORT INFORMATION
  Report Type: 
  Country: None (occurrence: None)
  Receive Date: 20100420
  Receipt Date: 20100409
  Transmission Date: 20101027
  Serious: Yes (Hospitalization, Other)
  Sender: FDA-Public Use
  Company Number: PHHY2010MX16487

PATIENT
  Sex: Female

DRUGS (1)
  1. DIOVAN HCT [Suspect]
     Indication: HYPERTENSION
     Dosage: 320/25 MG, UNK
     Route: 048
     Dates: start: 20100301

REACTIONS (2)
  - BLOOD PRESSURE INCREASED [None]
  - NEOPLASM PROGRESSION [None]
